FAERS Safety Report 26077022 (Version 1)
Quarter: 2025Q4

REPORT INFORMATION
  Report Type: Spontaneous
  Country: US (occurrence: US)
  Receive Date: 20251121
  Receipt Date: 20251121
  Transmission Date: 20260118
  Serious: Yes (Other)
  Sender: AMARIN PHARMA, INC.
  Company Number: US-Amarin Pharma  Inc-2025AMR000707

PATIENT
  Age: 73 Year
  Sex: Female
  Weight: 45 kg

DRUGS (3)
  1. VASCEPA [Suspect]
     Active Substance: ICOSAPENT ETHYL
     Indication: Product used for unknown indication
     Dates: start: 2023
  2. VASCEPA [Suspect]
     Active Substance: ICOSAPENT ETHYL
     Dosage: 2 A DAY
  3. ADVIL [Suspect]
     Active Substance: IBUPROFEN
     Indication: Product used for unknown indication
     Dosage: TWO (2) A DAY
     Route: 065

REACTIONS (14)
  - Plasma cell myeloma [Unknown]
  - Hypergammaglobulinaemia benign monoclonal [Unknown]
  - Spinal operation [Unknown]
  - Renal disorder [Not Recovered/Not Resolved]
  - Eructation [Unknown]
  - Illness [Unknown]
  - Back pain [Not Recovered/Not Resolved]
  - Gout [Unknown]
  - Poor quality product administered [Unknown]
  - Intentional product misuse [Unknown]
  - Product leakage [Unknown]
  - Product odour abnormal [Unknown]
  - Product colour issue [Unknown]
  - Product physical issue [Unknown]

NARRATIVE: CASE EVENT DATE: 20240901
